FAERS Safety Report 22197176 (Version 2)
Quarter: 2023Q2

REPORT INFORMATION
  Report Type: Spontaneous
  Country: US (occurrence: US)
  Receive Date: 20230411
  Receipt Date: 20230520
  Transmission Date: 20230721
  Serious: No
  Sender: FDA-Public Use
  Company Number: US-VIIV HEALTHCARE LIMITED-US2023AMR048964

PATIENT
  Sex: Male

DRUGS (10)
  1. RILPIVIRINE [Suspect]
     Active Substance: RILPIVIRINE
     Indication: HIV infection
     Dosage: UNK, EVERY 2 MONTHS
     Route: 065
     Dates: start: 20220816
  2. RILPIVIRINE [Suspect]
     Active Substance: RILPIVIRINE
     Dosage: UNK, EVERY 2 MONTHS
     Route: 065
     Dates: start: 20220913
  3. RILPIVIRINE [Suspect]
     Active Substance: RILPIVIRINE
     Dosage: UNK, EVERY 2 MONTHS
     Route: 065
     Dates: start: 20221108
  4. RILPIVIRINE [Suspect]
     Active Substance: RILPIVIRINE
     Dosage: UNK, EVERY 2 MONTHS
     Route: 065
     Dates: start: 20230110
  5. RILPIVIRINE [Suspect]
     Active Substance: RILPIVIRINE
     Dosage: UNK, EVERY 2 MONTHS
     Route: 065
     Dates: start: 20230314
  6. CABOTEGRAVIR [Suspect]
     Active Substance: CABOTEGRAVIR
     Indication: HIV infection
     Dosage: UNK, EVERY 2 MONTHS
     Route: 065
     Dates: start: 20220816
  7. CABOTEGRAVIR [Suspect]
     Active Substance: CABOTEGRAVIR
     Dosage: UNK, EVERY 2 MONTHS
     Route: 065
     Dates: start: 20220913
  8. CABOTEGRAVIR [Suspect]
     Active Substance: CABOTEGRAVIR
     Dosage: UNK, EVERY 2 MONTHS
     Route: 065
     Dates: start: 20221108
  9. CABOTEGRAVIR [Suspect]
     Active Substance: CABOTEGRAVIR
     Dosage: UNK, EVERY 2 MONTHS
     Route: 065
     Dates: start: 20230110
  10. CABOTEGRAVIR [Suspect]
     Active Substance: CABOTEGRAVIR
     Dosage: UNK, EVERY 2 MONTHS
     Route: 065
     Dates: start: 20230314

REACTIONS (3)
  - Viral load increased [Unknown]
  - CD4 lymphocytes increased [Unknown]
  - Product use in unapproved therapeutic environment [Unknown]
